FAERS Safety Report 6147110-9 (Version None)
Quarter: 2009Q2

REPORT INFORMATION
  Report Type: 
  Country: None (occurrence: None)
  Receive Date: 20090402
  Receipt Date: 20090320
  Transmission Date: 20091009
  Serious: Yes (Death)
  Sender: FDA-Public Use
  Company Number: BAYER CASE ID: 200911037GPV

PATIENT
  Age: 56 Year
  Sex: Male

DRUGS (18)
  1. FLUDARA [Suspect]
     Indication: CHRONIC LYMPHOCYTIC LEUKAEMIA
     Dosage: ORAL
     Route: 048
  2. CAMPATH [Suspect]
     Indication: CHRONIC LYMPHOCYTIC LEUKAEMIA
     Dosage: 30 MG, SUBCUTANEOUS
     Route: 058
  3. CYCLOPHOSPHAMIDE [Suspect]
     Indication: CHRONIC LYMPHOCYTIC LEUKAEMIA
     Dosage: ORAL
     Route: 048
  4. PLAVIX [Suspect]
     Indication: ANTICOAGULANT THERAPY
  5. PLAVIX [Suspect]
     Indication: AORTIC ANEURYSM
  6. PLAVIX [Suspect]
     Indication: VASCULAR GRAFT
  7. EPO (ERYTHROPOIETIN0 [Suspect]
     Dates: start: 20081222
  8. RUTUXIMAB (RITUXIMAB) [Concomitant]
  9. CYCLOPHOSPHAMIDE W/VINCRISTINE/PREDNISONE (CYCLOPHOSPHAMIDE W/VINCRIST [Concomitant]
  10. DOXORUBICIN HCL [Concomitant]
  11. G-CSF (G-CSF) [Concomitant]
  12. ISOPTIN [Concomitant]
  13. SPIRIVA [Concomitant]
  14. BRIPETERAX [Concomitant]
  15. PERINDOPRIL ERBUMINE [Concomitant]
  16. ATORVASTATIN CALCIUM [Concomitant]
  17. LASILIX (FUROSEMIDE [FUROSEMIDE]) [Concomitant]
  18. VALACYCLOVIR HCL [Concomitant]

REACTIONS (1)
  - HAEMORRHAGIC STROKE [None]
